FAERS Safety Report 5481079-5 (Version None)
Quarter: 2007Q4

REPORT INFORMATION
  Report Type: 
  Country: None (occurrence: None)
  Receive Date: 20071003
  Receipt Date: 20070918
  Transmission Date: 20080405
  Serious: Yes (Other)
  Sender: FDA-Public Use
  Company Number: 159148ISR

PATIENT
  Age: 54 Year
  Sex: Female

DRUGS (5)
  1. METHOTREXATE [Suspect]
     Indication: PSORIASIS
     Dosage: 15 MG (5MG, 3 IN 1 D)
     Dates: start: 20061009
  2. CYCLOSPORINE [Suspect]
     Indication: PSORIASIS
     Dosage: 250 MG (125 MG, 2 IN 1 D)
     Dates: start: 20060522, end: 20061009
  3. DOVOBET [Concomitant]
  4. CLOBETASOLL PROPIONATE [Concomitant]
  5. TACROLIMUS [Concomitant]

REACTIONS (2)
  - KERATOCONJUNCTIVITIS SICCA [None]
  - PERICARDIAL DISEASE [None]
